FAERS Safety Report 4632920-7 (Version None)
Quarter: 2005Q2

REPORT INFORMATION
  Report Type: 
  Country: None (occurrence: None)
  Receive Date: 20050412
  Receipt Date: 20050331
  Transmission Date: 20051028
  Serious: Yes (Other)
  Sender: FDA-Public Use
  Company Number: JP-JNJFOC-20050401751

PATIENT
  Sex: Male

DRUGS (5)
  1. DUROTEP [Suspect]
     Route: 062
  2. DUROTEP [Suspect]
     Route: 062
  3. DUROTEP [Suspect]
     Route: 062
  4. DUROTEP [Suspect]
     Indication: CANCER PAIN
     Route: 062
  5. MORPHINE HCL ELIXIR [Concomitant]
     Indication: CANCER PAIN

REACTIONS (1)
  - DELIRIUM [None]
